FAERS Safety Report 15359157 (Version 3)
Quarter: 2018Q3

REPORT INFORMATION
  Report Type: Report from Study
  Country: None (occurrence: US)
  Receive Date: 20180907
  Receipt Date: 20180925
  Transmission Date: 20181010
  Serious: Yes (Death)
  Sender: FDA-Public Use
  Company Number: US-ABBVIE-18K-163-2476982-00

PATIENT
  Age: 69 Year
  Sex: Male
  Weight: 73.09 kg

DRUGS (9)
  1. LASIX [Concomitant]
     Active Substance: FUROSEMIDE
     Indication: CARDIAC DISORDER
  2. BUPROPION. [Concomitant]
     Active Substance: BUPROPION
     Indication: ANXIETY
  3. HUMIRA [Suspect]
     Active Substance: ADALIMUMAB
     Indication: PSORIATIC ARTHROPATHY
     Route: 058
     Dates: start: 2008
  4. BUPROPION. [Concomitant]
     Active Substance: BUPROPION
     Indication: DEPRESSION
  5. KLOR?CON [Concomitant]
     Active Substance: POTASSIUM CHLORIDE
     Indication: SUPPLEMENTATION THERAPY
  6. SPIRONOLACTONE. [Concomitant]
     Active Substance: SPIRONOLACTONE
     Indication: DIURETIC THERAPY
  7. CORLANOR [Concomitant]
     Active Substance: IVABRADINE HYDROCHLORIDE
     Indication: CARDIAC DISORDER
  8. HUMIRA [Suspect]
     Active Substance: ADALIMUMAB
     Indication: PSORIASIS
  9. COUMADIN [Concomitant]
     Active Substance: WARFARIN SODIUM
     Indication: CARDIAC VALVE DISEASE

REACTIONS (12)
  - Pneumothorax [Fatal]
  - Hypovolaemic shock [Fatal]
  - Acute kidney injury [Fatal]
  - Musculoskeletal chest pain [Unknown]
  - Metastatic malignant melanoma [Fatal]
  - Lung cancer metastatic [Fatal]
  - Back pain [Unknown]
  - Brain cancer metastatic [Fatal]
  - Pain [Unknown]
  - Cardiac failure congestive [Fatal]
  - Coagulopathy [Fatal]
  - Vomiting [Unknown]

NARRATIVE: CASE EVENT DATE: 20180829
